FAERS Safety Report 11871502 (Version 2)
Quarter: 2016Q1

REPORT INFORMATION
  Report Type: Spontaneous
  Country: FR (occurrence: FR)
  Receive Date: 20151228
  Receipt Date: 20160314
  Transmission Date: 20160526
  Serious: Yes (Other)
  Sender: FDA-Public Use
  Company Number: FR-SA-2015SA216157

PATIENT
  Age: 55 Year
  Sex: Male

DRUGS (1)
  1. AUBAGIO [Suspect]
     Active Substance: TERIFLUNOMIDE
     Indication: MULTIPLE SCLEROSIS
     Route: 048
     Dates: start: 201511, end: 201512

REACTIONS (4)
  - Cell death [Unknown]
  - Alanine aminotransferase increased [Unknown]
  - Hepatic enzyme increased [Unknown]
  - Aspartate aminotransferase increased [Unknown]

NARRATIVE: CASE EVENT DATE: 20151217
